FAERS Safety Report 19622134 (Version 6)
Quarter: 2021Q3

REPORT INFORMATION
  Report Type: Spontaneous
  Country: US (occurrence: US)
  Receive Date: 20210728
  Receipt Date: 20210831
  Transmission Date: 20211014
  Serious: Yes (Other)
  Sender: FDA-Public Use
  Company Number: NVSC2021US165396

PATIENT
  Age: 72 Year
  Sex: Female

DRUGS (2)
  1. XIIDRA [Suspect]
     Active Substance: LIFITEGRAST
     Indication: DRY EYE
     Dosage: UNK UNK, BID (GGT)
     Route: 061
     Dates: start: 20210702, end: 20210709
  2. XIIDRA [Suspect]
     Active Substance: LIFITEGRAST
     Dosage: 1 DRP, BID (GTT)
     Route: 047
     Dates: start: 20210703, end: 20210707

REACTIONS (6)
  - Pain [Unknown]
  - Vision blurred [Unknown]
  - Ocular discomfort [Unknown]
  - Swelling [Unknown]
  - Rash [Not Recovered/Not Resolved]
  - Urticaria [Unknown]

NARRATIVE: CASE EVENT DATE: 20210706
